FAERS Safety Report 8104405 (Version 6)
Quarter: 2013Q3

REPORT INFORMATION
  Report Type: Spontaneous
  Country: US (occurrence: US)
  Receive Date: 20110824
  Receipt Date: 20130926
  Transmission Date: 20140515
  Serious: Yes (Hospitalization)
  Sender: FDA-Public Use
  Company Number: US-GLAXOSMITHKLINE-B0705848A

PATIENT
  Age: 52 Year
  Sex: Male
  Weight: 112.7 kg

DRUGS (5)
  1. AVANDIA [Suspect]
     Indication: DIABETES MELLITUS
     Dosage: 8MG PER DAY
     Route: 048
     Dates: start: 200407, end: 200811
  2. TOPROL XL [Concomitant]
  3. ALTACE [Concomitant]
  4. LIPITOR [Concomitant]
  5. VIAGRA [Concomitant]

REACTIONS (3)
  - Myocardial infarction [Unknown]
  - Ventricular tachycardia [Unknown]
  - Cardiovascular disorder [Unknown]
